FAERS Safety Report 18300541 (Version 4)
Quarter: 2021Q2

REPORT INFORMATION
  Report Type: Report from Study
  Country: US (occurrence: US)
  Receive Date: 20200923
  Receipt Date: 20210622
  Transmission Date: 20210717
  Serious: Yes (Other)
  Sender: FDA-Public Use
  Company Number: US-INCYTE CORPORATION-2020IN008140

PATIENT

DRUGS (3)
  1. FERRITIN [Suspect]
     Active Substance: FERRITIN
     Indication: BLOOD IRON INCREASED
     Dosage: UNK
     Route: 065
     Dates: start: 20200916
  2. JAKAFI [Suspect]
     Active Substance: RUXOLITINIB
     Dosage: 10 MG TWICE DAILY
     Route: 048
     Dates: start: 20150504, end: 20190207
  3. JAKAFI [Suspect]
     Active Substance: RUXOLITINIB
     Indication: MYELOFIBROSIS
     Dosage: 10 MILLIGRAM, BID
     Route: 048
     Dates: start: 20150405, end: 20190702

REACTIONS (19)
  - Fatigue [Unknown]
  - Temperature intolerance [Unknown]
  - Pain in extremity [Recovering/Resolving]
  - Nausea [Unknown]
  - Asthenia [Unknown]
  - Limb discomfort [Unknown]
  - Muscular weakness [Unknown]
  - Ill-defined disorder [Unknown]
  - Gait disturbance [Unknown]
  - Arthralgia [Recovering/Resolving]
  - Muscle spasms [Unknown]
  - Palpitations [Unknown]
  - Alopecia [Unknown]
  - Feeling abnormal [Unknown]
  - Flatulence [Unknown]
  - Serum ferritin increased [Not Recovered/Not Resolved]
  - Anaemia [Unknown]
  - Haematocrit abnormal [Unknown]
  - Condition aggravated [Unknown]

NARRATIVE: CASE EVENT DATE: 20200826
